FAERS Safety Report 7444663-5 (Version None)
Quarter: 2011Q2

REPORT INFORMATION
  Report Type: 
  Country: None (occurrence: None)
  Receive Date: 20110429
  Receipt Date: 20110427
  Transmission Date: 20111010
  Serious: Yes (Other)
  Sender: FDA-Public Use
  Company Number: US-PFIZER INC-2011091837

PATIENT
  Sex: Male
  Weight: 65.76 kg

DRUGS (4)
  1. CHANTIX [Suspect]
     Dosage: 1 MG, 2X/DAY
     Route: 048
     Dates: end: 20110417
  2. SOMA [Concomitant]
     Indication: MUSCLE RELAXANT THERAPY
     Dosage: 350 MG, 3X/DAY
     Route: 048
  3. PERCOCET [Concomitant]
     Indication: BONE PAIN
     Dosage: (OXYCODONE HYDROCHLORIDE 15MG)/ (PARACETAMOL 350MG), THREE TABLETS, 4X/DAY
     Route: 048
  4. CHANTIX [Suspect]
     Indication: SMOKING CESSATION THERAPY
     Dosage: 0.5 MG, 1X/DAY
     Route: 048

REACTIONS (3)
  - DEPRESSION [None]
  - RESTLESSNESS [None]
  - ANXIETY [None]
